FAERS Safety Report 16029718 (Version 2)
Quarter: 2019Q2

REPORT INFORMATION
  Report Type: Spontaneous
  Country: US (occurrence: US)
  Receive Date: 20190304
  Receipt Date: 20190429
  Transmission Date: 20190711
  Serious: No
  Sender: FDA-Public Use
  Company Number: US-ORPHAN EUROPE-2063490

PATIENT
  Age: 17 Year
  Sex: Female

DRUGS (1)
  1. CARBAGLU [Suspect]
     Active Substance: CARGLUMIC ACID
     Indication: HYPERGLYCINAEMIA
     Dates: start: 20140624

REACTIONS (4)
  - Ammonia increased [Unknown]
  - Product dose omission [Unknown]
  - Off label use [Unknown]
  - Gastroenteritis viral [Unknown]
